FAERS Safety Report 10190495 (Version 1)
Quarter: 2014Q2

REPORT INFORMATION
  Report Type: Spontaneous
  Country: US (occurrence: US)
  Receive Date: 20140522
  Receipt Date: 20140522
  Transmission Date: 20141212
  Serious: No
  Sender: FDA-Public Use
  Company Number: US-SA-2013SA124161

PATIENT
  Age: 46 Year
  Sex: Female

DRUGS (2)
  1. ELOXATIN [Suspect]
     Route: 065
  2. OTHER CHEMOTHERAPEUTICS [Concomitant]
     Route: 065

REACTIONS (2)
  - Platelet dysfunction [Unknown]
  - Thrombocytopenia [Unknown]
